FAERS Safety Report 5796260-5 (Version None)
Quarter: 2008Q3

REPORT INFORMATION
  Report Type: 
  Country: None (occurrence: None)
  Receive Date: 20080701
  Receipt Date: 20080620
  Transmission Date: 20090109
  Serious: Yes (Other)
  Sender: FDA-Public Use
  Company Number: GB-ASTRAZENECA-2008GB01159

PATIENT
  Age: 71 Year
  Sex: Female

DRUGS (10)
  1. OMEPRAZOLE [Suspect]
     Route: 048
     Dates: start: 20080529
  2. OMEPRAZOLE [Suspect]
     Route: 048
  3. WARFARIN SODIUM [Suspect]
     Route: 065
  4. WARFARIN SODIUM [Suspect]
     Route: 065
  5. DIGOXIN [Concomitant]
  6. DILTIAZEM HCL [Concomitant]
  7. GLICLAZIDE [Concomitant]
  8. LEVOTHYROXINE SODIUM [Concomitant]
  9. LOSARTAN POTASSIUM [Concomitant]
     Dates: end: 20080613
  10. METFORMIN [Concomitant]

REACTIONS (3)
  - INTERNATIONAL NORMALISED RATIO INCREASED [None]
  - VOMITING [None]
  - WEIGHT DECREASED [None]
